FAERS Safety Report 8511365 (Version 3)
Quarter: 2012Q4

REPORT INFORMATION
  Report Type: Report from Study
  Country: US (occurrence: US)
  Receive Date: 20120413
  Receipt Date: 20121218
  Transmission Date: 20130627
  Serious: Yes (Other)
  Sender: FDA-Public Use
  Company Number: US-CELGENEUS-163-C5013-12040715

PATIENT
  Age: 83 Year
  Sex: Male
  Weight: 78 kg

DRUGS (13)
  1. THALIDOMIDE [Suspect]
     Indication: MULTIPLE MYELOMA
     Dosage: 100 Milligram
     Route: 048
     Dates: start: 20090506
  2. THALIDOMIDE [Suspect]
     Dosage: 100 Milligram
     Route: 048
     Dates: start: 20100224, end: 20100406
  3. MELPHALAN [Suspect]
     Indication: MULTIPLE MYELOMA
     Dosage: .2 milligram/kilogram
     Route: 065
     Dates: start: 20090506
  4. MELPHALAN [Suspect]
     Dosage: .1 milligram/kilogram
     Route: 065
     Dates: start: 20100825, end: 20100828
  5. PREDNISONE [Suspect]
     Indication: MULTIPLE MYELOMA
     Dosage: .2 milligram/kilogram
     Route: 065
     Dates: start: 20090506
  6. PREDNISONE [Suspect]
     Dosage: .1 milligram/kilogram
     Route: 065
     Dates: start: 20100825, end: 20100828
  7. PREVACID [Concomitant]
     Indication: GERD
     Dosage: 30 Milligram
     Route: 048
     Dates: start: 2006
  8. LIPITOR [Concomitant]
     Indication: HYPERCHOLESTEROLEMIA
     Dosage: 20 Milligram
     Route: 048
     Dates: start: 2006
  9. ASPIRIN [Concomitant]
     Indication: THROMBOSIS PROPHYLAXIS
     Dosage: 81 Milligram
     Route: 048
     Dates: start: 2006
  10. SENOKOT [Concomitant]
     Indication: CONSTIPATION
     Dosage: 2 Tablet
     Route: 048
     Dates: start: 2006
  11. MILK OF MAGNESIA [Concomitant]
     Indication: CONSTIPATION
     Dosage: 3-4 tabs
     Route: 048
     Dates: start: 20090520
  12. ADVIL [Concomitant]
     Indication: CHRONIC BACK PAIN
     Dosage: 200 Milligram
     Route: 048
     Dates: start: 20070326, end: 20101102
  13. LORTAB [Concomitant]
     Indication: CHRONIC BACK PAIN
     Dosage: 7.5 Milligram
     Route: 048
     Dates: start: 20110225

REACTIONS (1)
  - Follicular thyroid cancer [Recovered/Resolved]
